FAERS Safety Report 6600704-6 (Version None)
Quarter: 2010Q1

REPORT INFORMATION
  Report Type: 
  Country: None (occurrence: None)
  Receive Date: 20100223
  Receipt Date: 20100223
  Transmission Date: 20100710
  Serious: Yes (Other)
  Sender: FDA-Public Use
  Company Number: None

PATIENT
  Age: 62 Year
  Sex: Female
  Weight: 76.2043 kg

DRUGS (1)
  1. ALLI (ORLISTAT) [Suspect]
     Indication: WEIGHT CONTROL
     Dosage: 1 CAPSULE BEFORE EACH MEAL CONTAINING FAT

REACTIONS (3)
  - ANGER [None]
  - DEPRESSION [None]
  - DRUG INTERACTION [None]
